FAERS Safety Report 25231759 (Version 4)
Quarter: 2025Q2

REPORT INFORMATION
  Report Type: Spontaneous
  Country: ES (occurrence: ES)
  Receive Date: 20250423
  Receipt Date: 20250602
  Transmission Date: 20250717
  Serious: Yes (Hospitalization)
  Sender: MERCK SHARP & DOHME LLC
  Company Number: ES-009507513-2276458

PATIENT
  Sex: Male
  Weight: 66 kg

DRUGS (16)
  1. PEMBROLIZUMAB [Suspect]
     Active Substance: PEMBROLIZUMAB
     Indication: Non-small cell lung cancer
     Route: 042
     Dates: start: 20240307, end: 20240307
  2. CARBOPLATIN [Suspect]
     Active Substance: CARBOPLATIN
     Indication: Non-small cell lung cancer
     Route: 042
     Dates: start: 20240307, end: 20240307
  3. CARBOPLATIN [Suspect]
     Active Substance: CARBOPLATIN
     Indication: Non-small cell lung cancer
     Route: 042
     Dates: start: 20240422, end: 20240422
  4. ASPIRIN [Concomitant]
     Active Substance: ASPIRIN
     Indication: Prophylaxis
     Route: 048
     Dates: start: 20190606
  5. CLOPIDOGREL [Concomitant]
     Active Substance: CLOPIDOGREL BISULFATE
     Indication: Prophylaxis
     Route: 048
     Dates: start: 20190804
  6. DEXTROMETHORPHAN [Concomitant]
     Active Substance: DEXTROMETHORPHAN
     Indication: Prophylaxis
     Route: 048
     Dates: start: 20240216
  7. FENTANYL [Concomitant]
     Active Substance: FENTANYL
     Indication: Prophylaxis
     Route: 061
     Dates: start: 20240216
  8. ACETAMINOPHEN [Concomitant]
     Active Substance: ACETAMINOPHEN
     Route: 048
     Dates: start: 20240216
  9. MORPHINE SULFATE [Concomitant]
     Active Substance: MORPHINE SULFATE
     Indication: Prophylaxis
     Route: 048
     Dates: start: 20240306
  10. MORPHINE SULFATE [Concomitant]
     Active Substance: MORPHINE SULFATE
     Indication: Prophylaxis
     Route: 048
     Dates: start: 20240326
  11. ATORVASTATIN [Concomitant]
     Active Substance: ATORVASTATIN
     Indication: Dyslipidaemia
     Route: 048
     Dates: start: 2020
  12. PACLITAXEL [Suspect]
     Active Substance: PACLITAXEL
     Indication: Non-small cell lung cancer
     Route: 042
     Dates: start: 20240307, end: 20240307
  13. PACLITAXEL [Suspect]
     Active Substance: PACLITAXEL
     Indication: Non-small cell lung cancer
     Route: 042
     Dates: start: 20240422, end: 20240422
  14. OMEPRAZOLE [Concomitant]
     Active Substance: OMEPRAZOLE
     Indication: Prophylaxis
     Route: 048
     Dates: start: 2019
  15. FOSTER [Concomitant]
     Active Substance: BECLOMETHASONE\FORMOTEROL
     Indication: Prophylaxis
     Route: 055
     Dates: start: 20240202
  16. FOSTER [Concomitant]
     Active Substance: BECLOMETHASONE\FORMOTEROL
     Indication: Prophylaxis
     Route: 055
     Dates: start: 20240216

REACTIONS (3)
  - Pneumonia [Recovered/Resolved]
  - Respiratory tract infection [Not Recovered/Not Resolved]
  - Superinfection [Not Recovered/Not Resolved]

NARRATIVE: CASE EVENT DATE: 20240307
